FAERS Safety Report 8777004 (Version 1)
Quarter: 2012Q4

REPORT INFORMATION
  Report Type: 
  Country: NL (occurrence: NL)
  Receive Date: 20120911
  Receipt Date: 20120911
  Transmission Date: 20130627
  Serious: Yes (Congenital Anomaly)
  Sender: FDA-Public Use
  Company Number: NL-GLAXOSMITHKLINE-B0829302A

PATIENT
  Age: 0 Year
  Sex: Female
  Weight: 4 kg

DRUGS (1)
  1. PAROXETINE [Suspect]
     Indication: DEPRESSION
     Dosage: 20MG Per day
     Route: 064
     Dates: start: 2011

REACTIONS (3)
  - Convulsion neonatal [Recovering/Resolving]
  - Respiratory depression [Unknown]
  - Foetal exposure during pregnancy [Unknown]
